FAERS Safety Report 7049314-X (Version None)
Quarter: 2010Q4

REPORT INFORMATION
  Report Type: 
  Country: None (occurrence: None)
  Receive Date: 20101018
  Receipt Date: 20091002
  Transmission Date: 20110411
  Serious: No
  Sender: FDA-Public Use
  Company Number: A0808334A

PATIENT
  Age: 9 Year
  Sex: Female

DRUGS (3)
  1. CEFTIN [Suspect]
     Indication: SINUSITIS
     Dosage: 500MG TWICE PER DAY
     Route: 048
  2. NASAL SPRAY [Concomitant]
  3. NASONEX [Concomitant]

REACTIONS (4)
  - DRUG INEFFECTIVE [None]
  - GROWING PAINS [None]
  - MUSCLE SPASMS [None]
  - SINUSITIS [None]
